FAERS Safety Report 17001037 (Version 3)
Quarter: 2020Q1

REPORT INFORMATION
  Report Type: Spontaneous
  Country: ES (occurrence: ES)
  Receive Date: 20191106
  Receipt Date: 20200117
  Transmission Date: 20200409
  Serious: Yes (Other)
  Sender: FDA-Public Use
  Company Number: ES-TEVA-2019-ES-1131047

PATIENT
  Age: 81 Year
  Sex: Male
  Weight: 84 kg

DRUGS (6)
  1. HIDROCLOROTIAZIDA 50 MG COMPRIMIDO [Concomitant]
     Indication: PRODUCT USED FOR UNKNOWN INDICATION
     Dosage: 50 MG
     Route: 048
     Dates: start: 20160810
  2. BETAHISTINA 16 MG COMPRIMIDO [Concomitant]
     Indication: VERTIGO
     Route: 048
     Dates: start: 20121114
  3. APIXABAN 5 MG 60 COMPRIMIDOS (PRODUCT) [Concomitant]
     Indication: ATRIAL FIBRILLATION
     Dosage: 5 MG
     Route: 048
     Dates: start: 20180410
  4. CARBAMAZEPINA NORMON 400 MG  COMPRIMIDOS EFG , 100 COMPRIMIDOS [Concomitant]
     Indication: TRIGEMINAL NEURALGIA
     Dosage: 400 MG
     Route: 048
     Dates: start: 20110617
  5. RAMIPRIL 2,5 MG 56 COMPRIMIDOS (PRODUCTO) [Suspect]
     Active Substance: RAMIPRIL
     Indication: HYPERTENSION
     Dosage: 1.25 MG
     Route: 048
     Dates: start: 20191004, end: 20191010
  6. TAMSULOSINA (2751A) [Concomitant]
     Active Substance: TAMSULOSIN HYDROCHLORIDE
     Indication: BENIGN PROSTATIC HYPERPLASIA
     Dosage: 0.4 MG
     Route: 048
     Dates: start: 20130625

REACTIONS (2)
  - Pruritus [Recovered/Resolved]
  - Rash pruritic [Recovered/Resolved]

NARRATIVE: CASE EVENT DATE: 20191009
